FAERS Safety Report 4710699-8 (Version None)
Quarter: 2005Q3

REPORT INFORMATION
  Report Type: 
  Country: None (occurrence: None)
  Receive Date: 20050711
  Receipt Date: 19950612
  Transmission Date: 20060218
  Serious: Yes (Hospitalization, Congenital Anomaly)
  Sender: FDA-Public Use
  Company Number: US-MERCK-95051127B1

PATIENT
  Age: 0 Day
  Sex: Female
  Weight: 2 kg

DRUGS (1)
  1. MEVACOR [Suspect]
     Indication: HYPERCHOLESTEROLAEMIA
     Dates: end: 19941027

REACTIONS (12)
  - ACROCHORDON [None]
  - AORTA HYPOPLASIA [None]
  - AORTIC DISORDER [None]
  - ATRIAL SEPTAL DEFECT [None]
  - CARDIAC FAILURE [None]
  - CONGENITAL ANOMALY [None]
  - CONGENITAL MUSCULOSKELETAL ANOMALY [None]
  - HYDROCEPHALUS [None]
  - LIMB MALFORMATION [None]
  - NERVOUS SYSTEM DISORDER [None]
  - PREMATURE LABOUR [None]
  - VENTRICULAR SEPTAL DEFECT [None]
